FAERS Safety Report 13252289 (Version 2)
Quarter: 2017Q1

REPORT INFORMATION
  Report Type: Spontaneous
  Country: DE (occurrence: DE)
  Receive Date: 20170220
  Receipt Date: 20170224
  Transmission Date: 20170428
  Serious: Yes (Death, Other)
  Sender: FDA-Public Use
  Company Number: DE-JNJFOC-20170216050

PATIENT

DRUGS (1)
  1. DARATUMUMAB [Suspect]
     Active Substance: DARATUMUMAB
     Indication: PLASMA CELL MYELOMA
     Route: 042

REACTIONS (9)
  - Acute coronary syndrome [Unknown]
  - Cough [Unknown]
  - Rash [Unknown]
  - Infection [Fatal]
  - Chills [Unknown]
  - Bronchospasm [Unknown]
  - Ocular discomfort [Unknown]
  - Dyspnoea [Unknown]
  - Musculoskeletal pain [Unknown]
